FAERS Safety Report 14787817 (Version 1)
Quarter: 2018Q2

REPORT INFORMATION
  Report Type: Report from Study
  Country: US (occurrence: US)
  Receive Date: 20180422
  Receipt Date: 20180422
  Transmission Date: 20180711
  Serious: Yes (Hospitalization)
  Sender: FDA-Public Use
  Company Number: US-TEVA-775201USA

PATIENT
  Age: 14 Year
  Sex: Male
  Weight: 78.5 kg

DRUGS (7)
  1. PEGASPARGASE [Suspect]
     Active Substance: PEGASPARGASE
     Indication: CHEMOTHERAPY
     Dosage: 4725 IU/M2 ONCE
     Route: 042
     Dates: start: 20161021
  2. THIOGUANINE [Suspect]
     Active Substance: THIOGUANINE
     Indication: CHEMOTHERAPY
     Dosage: 120 MILLIGRAM DAILY;
     Route: 048
     Dates: start: 20170411
  3. CYCLOPHOSPHAMIDE. [Suspect]
     Active Substance: CYCLOPHOSPHAMIDE
     Indication: CHEMOTHERAPY
     Dosage: DAY 29
     Route: 042
     Dates: start: 20161007
  4. CYTARABINE. [Suspect]
     Active Substance: CYTARABINE
     Indication: CHEMOTHERAPY
     Dosage: DAY 29-32; DAY 36-39
     Route: 042
     Dates: start: 20161007
  5. METHOTREXATE. [Suspect]
     Active Substance: METHOTREXATE
     Indication: CHEMOTHERAPY
     Dosage: DAY 29
     Route: 037
     Dates: start: 20161007
  6. INCB018424 [Suspect]
     Active Substance: RUXOLITINIB
     Indication: ACUTE LYMPHOCYTIC LEUKAEMIA
     Dosage: 110 MILLIGRAM DAILY;
     Route: 048
     Dates: start: 20161007
  7. VINCRISTINE [Suspect]
     Active Substance: VINCRISTINE
     Indication: CHEMOTHERAPY
     Dosage: ONCE
     Route: 042
     Dates: start: 20161118

REACTIONS (1)
  - Febrile neutropenia [Recovered/Resolved]

NARRATIVE: CASE EVENT DATE: 20170430
